FAERS Safety Report 7312653-9 (Version None)
Quarter: 2011Q1

REPORT INFORMATION
  Report Type: 
  Country: None (occurrence: None)
  Receive Date: 20110224
  Receipt Date: 20101213
  Transmission Date: 20110831
  Serious: No
  Sender: FDA-Public Use
  Company Number: US-MYLANLABS-2010S1022849

PATIENT
  Age: 41 Year
  Sex: Male

DRUGS (1)
  1. LANSOPRAZOLE [Suspect]
     Indication: GASTROOESOPHAGEAL REFLUX DISEASE
     Route: 048
     Dates: start: 20101015, end: 20101017

REACTIONS (4)
  - HEADACHE [None]
  - NAUSEA [None]
  - DIZZINESS [None]
  - REACTION TO DRUG EXCIPIENTS [None]
